FAERS Safety Report 23281136 (Version 1)
Quarter: 2023Q4

REPORT INFORMATION
  Report Type: Spontaneous
  Country: DE (occurrence: DE)
  Receive Date: 20231211
  Receipt Date: 20231211
  Transmission Date: 20240110
  Serious: Yes (Other)
  Sender: FDA-Public Use
  Company Number: DE-DCGMA-23202155

PATIENT
  Age: 61 Year
  Sex: Female

DRUGS (1)
  1. MABTHERA [Suspect]
     Active Substance: RITUXIMAB
     Indication: B-cell lymphoma
     Route: 065

REACTIONS (3)
  - Lung opacity [Unknown]
  - Exercise tolerance decreased [Unknown]
  - Alveolitis [Recovered/Resolved]
